FAERS Safety Report 18768156 (Version 4)
Quarter: 2021Q1

REPORT INFORMATION
  Report Type: Spontaneous
  Country: CA (occurrence: CA)
  Receive Date: 20210121
  Receipt Date: 20210217
  Transmission Date: 20210419
  Serious: No
  Sender: FDA-Public Use
  Company Number: CA-PFIZER INC-2020518430

PATIENT
  Sex: Female

DRUGS (1)
  1. FRAGMIN [Suspect]
     Active Substance: DALTEPARIN SODIUM
     Dosage: 125000 IU, DAILY

REACTIONS (4)
  - Device occlusion [Unknown]
  - Poor quality device used [Unknown]
  - Needle issue [Unknown]
  - Device safety feature issue [Unknown]
